FAERS Safety Report 21249007 (Version 2)
Quarter: 2022Q3

REPORT INFORMATION
  Report Type: Spontaneous
  Country: JP (occurrence: JP)
  Receive Date: 20220824
  Receipt Date: 20220912
  Transmission Date: 20221027
  Serious: Yes (Life-Threatening, Hospitalization, Other)
  Sender: FDA-Public Use
  Company Number: JP-PFIZER INC-PV202200035199

PATIENT
  Age: 79 Year
  Sex: Male
  Weight: 53 kg

DRUGS (7)
  1. RHEUMATREX [Suspect]
     Active Substance: METHOTREXATE SODIUM
     Indication: Rheumatoid arthritis
     Dosage: 6 MG, WEEKLY (4 MG IN THE MORNING AND 2 MG IN THE EVENING)
     Route: 048
     Dates: start: 20080801, end: 20220729
  2. COVID-19 VACCINE [Concomitant]
     Indication: COVID-19 immunisation
     Dosage: DOSE 4 (BOOSTER), SINGLE
     Dates: start: 20220727, end: 20220727
  3. AMLODIPINE BESYLATE [Concomitant]
     Active Substance: AMLODIPINE BESYLATE
     Indication: Hypertension
     Dosage: 5 MG, 1X/DAY
     Route: 048
     Dates: start: 20081226, end: 20220729
  4. LOXOPROFEN SODIUM [Concomitant]
     Active Substance: LOXOPROFEN SODIUM
     Indication: Rheumatoid arthritis
     Dosage: 60 MG, AS NEEDED
     Route: 048
     Dates: start: 200806, end: 20220729
  5. TENELIGLIPTIN [Concomitant]
     Active Substance: TENELIGLIPTIN
     Indication: Diabetes mellitus
     Dosage: 20 MG, 1X/DAY
     Route: 048
     Dates: start: 20170913, end: 20220729
  6. FOLIAMIN TABLETS [Concomitant]
     Indication: Rheumatoid arthritis
     Dosage: 5 MG, WEEKLY
     Route: 048
     Dates: start: 20080801, end: 20220729
  7. BENFOTIAMINE\CYANOCOBALAMIN\PYRIDOXINE HYDROCHLORIDE [Concomitant]
     Active Substance: BENFOTIAMINE\CYANOCOBALAMIN\PYRIDOXINE HYDROCHLORIDE
     Indication: Hypovitaminosis
     Dosage: UNK
     Route: 048
     Dates: start: 20220720, end: 20220729

REACTIONS (5)
  - Myelosuppression [Not Recovered/Not Resolved]
  - Stomatitis [Unknown]
  - Dyspnoea [Unknown]
  - Pyrexia [Unknown]
  - Folate deficiency [Unknown]

NARRATIVE: CASE EVENT DATE: 20220726
